FAERS Safety Report 8621779-9 (Version None)
Quarter: 2012Q3

REPORT INFORMATION
  Report Type: 
  Country: None (occurrence: None)
  Receive Date: 20120821
  Receipt Date: 20120821
  Transmission Date: 20120928
  Serious: Yes (Life-Threatening, Hospitalization, Disabling, Other)
  Sender: FDA-Public Use
  Company Number: None

PATIENT
  Age: 19 Year
  Sex: Female
  Weight: 103.8737 kg

DRUGS (3)
  1. TRI-SPRINTEC [Suspect]
  2. TRI-SPRINTEC [Suspect]
     Indication: ACNE
     Dosage: ONE ONE DAILY PO
     Route: 048
     Dates: start: 20110802, end: 20120731
  3. TRI-SPRINTEC [Suspect]
     Indication: MENSTRUATION IRREGULAR
     Dosage: ONE ONE DAILY PO
     Route: 048
     Dates: start: 20110802, end: 20120731

REACTIONS (1)
  - PULMONARY THROMBOSIS [None]
